FAERS Safety Report 18485777 (Version 1)
Quarter: 2020Q4

REPORT INFORMATION
  Report Type: Spontaneous
  Country: US (occurrence: US)
  Receive Date: 20201110
  Receipt Date: 20201110
  Transmission Date: 20210114
  Serious: Yes (Hospitalization)
  Sender: FDA-Public Use
  Company Number: None

PATIENT
  Age: 71 Year
  Sex: Male
  Weight: 101 kg

DRUGS (1)
  1. IXAZOMIB [Suspect]
     Active Substance: IXAZOMIB
     Indication: PLASMA CELL MYELOMA
     Dosage: ?          OTHER DOSE:1XAZOMIB;OTHER FREQUENCY:D 1,8,15;?
     Dates: start: 20190621

REACTIONS (2)
  - Nausea [None]
  - COVID-19 pneumonia [None]

NARRATIVE: CASE EVENT DATE: 20201103
